FAERS Safety Report 4889735-4 (Version None)
Quarter: 2006Q1

REPORT INFORMATION
  Report Type: 
  Country: None (occurrence: None)
  Receive Date: 20060124
  Receipt Date: 20050317
  Transmission Date: 20060701
  Serious: Yes (Hospitalization)
  Sender: FDA-Public Use
  Company Number: US-MERCK-0503USA03426

PATIENT
  Age: 73 Year
  Sex: Male
  Weight: 118 kg

DRUGS (12)
  1. VIOXX [Suspect]
     Indication: ARTHRITIS
     Route: 048
     Dates: start: 20020101, end: 20041101
  2. VIOXX [Suspect]
     Route: 048
     Dates: start: 20020101, end: 20041101
  3. BLACK COHOSH [Concomitant]
     Route: 065
  4. PLAVIX [Concomitant]
     Route: 065
  5. LASIX [Concomitant]
     Route: 065
  6. COUMADIN [Concomitant]
     Route: 065
  7. METFORMIN [Concomitant]
     Route: 065
  8. TYLENOL (CAPLET) [Concomitant]
     Route: 065
  9. ASPIRIN [Concomitant]
     Route: 065
  10. ZOCOR [Concomitant]
     Route: 065
  11. NEXIUM [Concomitant]
     Route: 065
  12. VICODIN [Concomitant]
     Route: 065

REACTIONS (15)
  - ACUTE CORONARY SYNDROME [None]
  - ANGINA PECTORIS [None]
  - ANGINA UNSTABLE [None]
  - ARTERIAL OCCLUSIVE DISEASE [None]
  - ARTERIAL STENOSIS [None]
  - CEREBROVASCULAR ACCIDENT [None]
  - CHEST PAIN [None]
  - DYSPHAGIA [None]
  - GASTROOESOPHAGEAL REFLUX DISEASE [None]
  - HYPERTENSION [None]
  - MYOCARDIAL INFARCTION [None]
  - MYOCARDIAL ISCHAEMIA [None]
  - OVERDOSE [None]
  - SYNCOPE [None]
  - TRANSIENT ISCHAEMIC ATTACK [None]
